FAERS Safety Report 8145858-8 (Version None)
Quarter: 2012Q1

REPORT INFORMATION
  Report Type: 
  Country: None (occurrence: None)
  Receive Date: 20120217
  Receipt Date: 20111018
  Transmission Date: 20120608
  Serious: No
  Sender: FDA-Public Use
  Company Number: US-ABBOTT-11P-163-0865795-00

PATIENT
  Sex: Female
  Weight: 63.56 kg

DRUGS (4)
  1. VITAMIN D [Concomitant]
     Indication: PRODUCT USED FOR UNKNOWN INDICATION
  2. INDERAL [Concomitant]
     Indication: CARDIAC FLUTTER
  3. BENADRYL [Concomitant]
     Indication: POOR QUALITY SLEEP
     Dosage: TAKES ROUTINELY
  4. SIMCOR [Suspect]
     Indication: PRODUCT USED FOR UNKNOWN INDICATION
     Dates: start: 20110901

REACTIONS (1)
  - FLUSHING [None]
